FAERS Safety Report 12211960 (Version 1)
Quarter: 2016Q1

REPORT INFORMATION
  Report Type: Spontaneous
  Country: US (occurrence: US)
  Receive Date: 20160325
  Receipt Date: 20160325
  Transmission Date: 20160526
  Serious: No
  Sender: FDA-Public Use
  Company Number: US-MALLINCKRODT-T201600863

PATIENT
  Sex: Male

DRUGS (2)
  1. NALTREXONE [Concomitant]
     Active Substance: NALTREXONE
     Indication: DEPENDENCE
  2. NALTREXONE [Suspect]
     Active Substance: NALTREXONE
     Indication: PRODUCT USE ISSUE
     Dosage: 50 MG, BID
     Route: 065

REACTIONS (8)
  - Disturbance in attention [Unknown]
  - Anger [Unknown]
  - Feeling abnormal [Unknown]
  - Hallucination, visual [Unknown]
  - Psychomotor hyperactivity [Unknown]
  - Drug effect increased [Unknown]
  - Nervousness [Unknown]
  - Off label use [Unknown]

NARRATIVE: CASE EVENT DATE: 20160307
